FAERS Safety Report 9466759 (Version 2)
Quarter: 2013Q3

REPORT INFORMATION
  Report Type: Report from Study
  Country: US (occurrence: US)
  Receive Date: 20130820
  Receipt Date: 20130925
  Transmission Date: 20140515
  Serious: No
  Sender: FDA-Public Use
  Company Number: PHEH2013US017621

PATIENT
  Age: 5 Year
  Sex: Male
  Weight: 19.5 kg

DRUGS (6)
  1. TOBI [Suspect]
     Indication: PSEUDOMONAS INFECTION
     Dosage: 5 ML, BID,  28 DAYS ON/28 DAYS OFF
     Dates: start: 20130208
  2. ATROVENT [Concomitant]
     Indication: SALIVARY HYPERSECRETION
     Dosage: 2 DF (2 PUFFS), EVERY 4 HOURS, PRN
     Dates: start: 2009
  3. ROBINUL [Concomitant]
     Indication: SALIVARY HYPERSECRETION
     Dosage: 3 ML, BID (PRN)
     Route: 048
     Dates: start: 2009
  4. FLOVENT [Concomitant]
     Indication: LUNG DISORDER
     Dosage: 2 DF, BID
     Dates: start: 2009
  5. ALBUTEROL [Concomitant]
     Indication: LUNG DISORDER
     Dosage: 3 ML, BID, PRN
     Dates: start: 2009
  6. XOPENEX [Concomitant]
     Indication: LUNG DISORDER
     Dosage: 2 DF (2 PUFFS), PRN
     Dates: start: 2009

REACTIONS (2)
  - Drug administered to patient of inappropriate age [Unknown]
  - Pseudomonas infection [Unknown]
